FAERS Safety Report 19214112 (Version 2)
Quarter: 2021Q2

REPORT INFORMATION
  Report Type: Report from Study
  Country: None (occurrence: CA)
  Receive Date: 20210505
  Receipt Date: 20210506
  Transmission Date: 20210717
  Serious: Yes (Death, Other)
  Sender: FDA-Public Use
  Company Number: CA-ABBVIE-21K-028-3888597-00

PATIENT
  Age: 60 Year
  Sex: Female

DRUGS (1)
  1. RINVOQ [Suspect]
     Active Substance: UPADACITINIB
     Indication: RHEUMATOID ARTHRITIS
     Route: 048

REACTIONS (3)
  - Coma [Not Recovered/Not Resolved]
  - COVID-19 [Fatal]
  - Death [Fatal]

NARRATIVE: CASE EVENT DATE: 2021
